FAERS Safety Report 6876943-6 (Version None)
Quarter: 2010Q3

REPORT INFORMATION
  Report Type: 
  Country: None (occurrence: None)
  Receive Date: 20100727
  Receipt Date: 20100715
  Transmission Date: 20110219
  Serious: No
  Sender: FDA-Public Use
  Company Number: US-ELI_LILLY_AND_COMPANY-US201007005441

PATIENT
  Age: 75 Year
  Sex: Male

DRUGS (1)
  1. CIALIS [Suspect]
     Dosage: 5 MG, UNKNOWN
     Route: 065

REACTIONS (1)
  - VISION BLURRED [None]
